FAERS Safety Report 10519734 (Version 3)
Quarter: 2014Q4

REPORT INFORMATION
  Report Type: Spontaneous
  Country: TR (occurrence: TR)
  Receive Date: 20141015
  Receipt Date: 20141023
  Transmission Date: 20150528
  Serious: Yes (Hospitalization)
  Sender: FDA-Public Use
  Company Number: TR-PFIZER INC-2014258285

PATIENT
  Age: 54 Year
  Sex: Female

DRUGS (13)
  1. INLYTA [Suspect]
     Active Substance: AXITINIB
     Indication: METASTATIC RENAL CELL CARCINOMA
     Dosage: 5 MG, 2X/DAY
     Dates: start: 20140712, end: 20140730
  2. INLYTA [Suspect]
     Active Substance: AXITINIB
     Dosage: 5 MG, 2X/DAY
     Dates: start: 20140825, end: 20140831
  3. REMERON [Suspect]
     Active Substance: MIRTAZAPINE
     Indication: INSOMNIA
     Dosage: 30 MG, 1X/DAY
     Dates: start: 201306, end: 20140808
  4. DILTIAZEM [Concomitant]
     Active Substance: DILTIAZEM
     Dosage: 90 MG, 1X/DAY AT MORNINGS
  5. NORODOL [Concomitant]
     Dosage: 7 DROPS 2X/DAY (MORNING/NIGHT)
  6. INLYTA [Suspect]
     Active Substance: AXITINIB
     Dosage: 5 MG, 1X/DAY
     Dates: start: 20140917, end: 20140930
  7. CO-DIOVAN [Concomitant]
     Active Substance: HYDROCHLOROTHIAZIDE\VALSARTAN
     Dosage: 1X/DAY, AT MORNINGS
     Dates: start: 20140917, end: 20140930
  8. CO-DIOVAN [Concomitant]
     Active Substance: HYDROCHLOROTHIAZIDE\VALSARTAN
     Indication: HYPERTENSION
     Dosage: 160/12,5MG 1X/DAY
     Dates: start: 20140712, end: 20140721
  9. LANSOR [Concomitant]
     Active Substance: LANSOPRAZOLE
     Dosage: 30 MG, 1X/DAY AT MORNINGS
  10. EUTHYROX [Concomitant]
     Active Substance: LEVOTHYROXINE SODIUM
     Dosage: 50 MG, 1X/DAY AT MORNINGS
  11. REMERON [Suspect]
     Active Substance: MIRTAZAPINE
     Indication: ALTERED STATE OF CONSCIOUSNESS
  12. CO-DIOVAN [Concomitant]
     Active Substance: HYDROCHLOROTHIAZIDE\VALSARTAN
     Dosage: 160/12,5MG 2X/DAY
     Dates: start: 20140721, end: 20140730
  13. CO-DIOVAN [Concomitant]
     Active Substance: HYDROCHLOROTHIAZIDE\VALSARTAN
     Dosage: 2X/DAY
     Dates: start: 20140825, end: 20140831

REACTIONS (5)
  - Contusion [Recovered/Resolved]
  - Blood sodium decreased [Not Recovered/Not Resolved]
  - Eye movement disorder [Recovered/Resolved]
  - Blood pressure increased [Unknown]
  - Trismus [Recovered/Resolved]

NARRATIVE: CASE EVENT DATE: 201407
